FAERS Safety Report 6544802-4 (Version None)
Quarter: 2010Q1

REPORT INFORMATION
  Report Type: 
  Country: None (occurrence: None)
  Receive Date: 20100121
  Receipt Date: 20100113
  Transmission Date: 20100710
  Serious: Yes (Other)
  Sender: FDA-Public Use
  Company Number: US-JNJFOC-20061006152

PATIENT
  Sex: Male
  Weight: 98.2 kg

DRUGS (10)
  1. RISPERDAL [Suspect]
     Indication: EXTRAPYRAMIDAL DISORDER
     Route: 048
  2. RISPERDAL [Suspect]
     Route: 048
  3. RISPERDAL [Suspect]
     Indication: SCHIZOPHRENIA
     Route: 048
  4. RISPERDAL [Suspect]
     Route: 048
  5. RISPERDAL [Suspect]
     Indication: MENTAL RETARDATION
     Route: 048
  6. RISPERDAL [Suspect]
     Route: 048
  7. RISPERDAL [Suspect]
     Indication: INTERMITTENT EXPLOSIVE DISORDER
     Route: 048
  8. RISPERDAL [Suspect]
     Route: 048
  9. RISPERDAL [Suspect]
     Indication: PERSONALITY DISORDER
     Route: 048
  10. RISPERDAL [Suspect]
     Route: 048

REACTIONS (2)
  - TREMOR [None]
  - TYPE 2 DIABETES MELLITUS [None]
